FAERS Safety Report 9632889 (Version 2)
Quarter: 2013Q4

REPORT INFORMATION
  Report Type: Spontaneous
  Country: ES (occurrence: ES)
  Receive Date: 20131018
  Receipt Date: 20131219
  Transmission Date: 20140711
  Serious: Yes (Hospitalization)
  Sender: FDA-Public Use
  Company Number: ES-ABBVIE-13P-144-1157146-00

PATIENT
  Sex: Female

DRUGS (3)
  1. HUMIRA [Suspect]
     Indication: CROHN^S DISEASE
     Dosage: 160/80--40 MG EVERY OTHER WEEK
     Route: 058
     Dates: start: 20130516, end: 20130808
  2. IMUREL [Suspect]
     Indication: CROHN^S DISEASE
     Route: 048
     Dates: start: 201301, end: 20130813
  3. YASMIN [Suspect]
     Indication: POLYCYSTIC OVARIES

REACTIONS (6)
  - Asthenia [Recovered/Resolved]
  - Blood cholesterol increased [Unknown]
  - Muscle disorder [Unknown]
  - Chromaturia [Recovered/Resolved]
  - Jaundice [Unknown]
  - Blood bilirubin increased [Unknown]
